FAERS Safety Report 5082524-X (Version None)
Quarter: 2006Q3

REPORT INFORMATION
  Report Type: 
  Country: None (occurrence: None)
  Receive Date: 20060814
  Receipt Date: 20060804
  Transmission Date: 20061208
  Serious: No
  Sender: FDA-Public Use
  Company Number: 06H-163-0309569-00

PATIENT
  Age: 61 Year
  Sex: Male

DRUGS (2)
  1. AMINOSYN 8.5% [Suspect]
     Dosage: CONTINUOUS VIA PICC LINE, PARENTERAL
     Route: 051
     Dates: start: 20060801
  2. DEXTROSE 50% [Suspect]
     Dosage: CONTINUOUS VIA PICC LINE, PARENTERAL
     Route: 051
     Dates: start: 20060801

REACTIONS (5)
  - CATHETER RELATED INFECTION [None]
  - CHILLS [None]
  - ESCHERICHIA INFECTION [None]
  - PYREXIA [None]
  - TREMOR [None]
